FAERS Safety Report 8895127 (Version 1)
Quarter: 2012Q4

REPORT INFORMATION
  Report Type: 
  Country: US (occurrence: US)
  Receive Date: 20121107
  Receipt Date: 20121107
  Transmission Date: 20130627
  Serious: No
  Sender: FDA-Public Use
  Company Number: US-AMGEN-USASP2011056569

PATIENT
  Age: 57 Year
  Sex: Female

DRUGS (5)
  1. ENBREL [Suspect]
     Dosage: 50 mg, qwk
  2. PAXIL [Concomitant]
     Dosage: 10 mg, UNK
  3. LOTRIL [Concomitant]
     Dosage: 2.5 mg, UNK
  4. LEVOTHYROXIN [Concomitant]
     Dosage: 100 mug, UNK
  5. FISH OIL [Concomitant]
     Dosage: UNK

REACTIONS (2)
  - Nausea [Unknown]
  - Bronchitis [Unknown]
